FAERS Safety Report 10010443 (Version 1)
Quarter: 2014Q1

REPORT INFORMATION
  Report Type: Spontaneous
  Country: US (occurrence: US)
  Receive Date: 20140314
  Receipt Date: 20140314
  Transmission Date: 20141002
  Serious: No
  Sender: FDA-Public Use
  Company Number: US-BIOGENIDEC-2014BI021795

PATIENT
  Sex: Male

DRUGS (1)
  1. AVONEX [Suspect]
     Indication: MULTIPLE SCLEROSIS
     Route: 030
     Dates: start: 20070501, end: 20140101

REACTIONS (3)
  - Visual acuity reduced [Not Recovered/Not Resolved]
  - Pain [Recovered/Resolved]
  - Chills [Recovered/Resolved]
